FAERS Safety Report 22623243 (Version 1)
Quarter: 2023Q2

REPORT INFORMATION
  Report Type: Report from Study
  Country: CA (occurrence: CA)
  Receive Date: 20230621
  Receipt Date: 20230621
  Transmission Date: 20230721
  Serious: Yes (Other)
  Sender: FDA-Public Use
  Company Number: CA-ABBVIE-5297865

PATIENT
  Sex: Female

DRUGS (2)
  1. SKYRIZI [Suspect]
     Active Substance: RISANKIZUMAB-RZAA
     Indication: Crohn^s disease
     Route: 058
  2. VITAMIN B12 [Concomitant]
     Active Substance: CYANOCOBALAMIN
     Indication: Product used for unknown indication
     Dosage: TOOK B12 THROUGH PERIPHERALLY INSERTED CENTRAL CATHETER LINE

REACTIONS (7)
  - Neoplasm malignant [Unknown]
  - Polyp [Unknown]
  - Decreased appetite [Unknown]
  - Vulvovaginal pain [Unknown]
  - Pain [Unknown]
  - Urinary tract infection [Recovered/Resolved]
  - Anal fistula [Unknown]
